FAERS Safety Report 8013236-8 (Version None)
Quarter: 2011Q4

REPORT INFORMATION
  Report Type: 
  Country: None (occurrence: None)
  Receive Date: 20111229
  Receipt Date: 20111229
  Transmission Date: 20120403
  Serious: Yes (Hospitalization)
  Sender: FDA-Public Use
  Company Number: None

PATIENT
  Weight: 68.038 kg

DRUGS (1)
  1. LEVOFLOXACIN [Suspect]
     Dosage: 1
     Route: 048
     Dates: start: 20081031, end: 20111206

REACTIONS (1)
  - TENDON DISORDER [None]
